FAERS Safety Report 5671721-8 (Version None)
Quarter: 2008Q1

REPORT INFORMATION
  Report Type: 
  Country: None (occurrence: None)
  Receive Date: 20080314
  Receipt Date: 20080305
  Transmission Date: 20080703
  Serious: Yes (Death, Hospitalization)
  Sender: FDA-Public Use
  Company Number: 2007BI026834

PATIENT
  Age: 58 Year
  Sex: Male

DRUGS (4)
  1. TYSABRI [Suspect]
     Indication: MULTIPLE SCLEROSIS
     Dosage: 300 MG;QM;IV
     Route: 042
     Dates: start: 20061027, end: 20071205
  2. NEXIUM [Concomitant]
  3. ASPIRIN [Concomitant]
  4. BENICAR [Concomitant]

REACTIONS (1)
  - PULMONARY EMBOLISM [None]
